FAERS Safety Report 18475203 (Version 1)
Quarter: 2020Q4

REPORT INFORMATION
  Report Type: Spontaneous
  Country: US (occurrence: US)
  Receive Date: 20201106
  Receipt Date: 20201106
  Transmission Date: 20210114
  Serious: Yes (Hospitalization, Other)
  Sender: FDA-Public Use
  Company Number: US-PRINSTON PHARMACEUTICAL INC.-2020PRN00376

PATIENT
  Age: 12 Year
  Sex: Male

DRUGS (11)
  1. CLONIDINE HYDROCHLORIDE. [Suspect]
     Active Substance: CLONIDINE HYDROCHLORIDE
     Dosage: UNK
     Route: 065
  2. CYPROHEPTADINE. [Suspect]
     Active Substance: CYPROHEPTADINE
     Indication: INCREASED APPETITE
     Dosage: 12 MG, 1X/DAY
     Route: 065
  3. CYPROHEPTADINE. [Suspect]
     Active Substance: CYPROHEPTADINE
     Dosage: UNK
     Route: 065
  4. AMPHETAMINE/DEXTROAMPHETAMINE [Concomitant]
     Active Substance: AMPHETAMINE\DEXTROAMPHETAMINE
     Dosage: 30 MG, 1X/DAY
     Route: 065
  5. ONDANSETRON [Suspect]
     Active Substance: ONDANSETRON
     Indication: OROPHARYNGEAL PAIN
     Dosage: UNK UNK, ONCE
     Route: 042
  6. ONDANSETRON [Suspect]
     Active Substance: ONDANSETRON
     Indication: ABDOMINAL PAIN
  7. ARIPIPRAZOLE. [Suspect]
     Active Substance: ARIPIPRAZOLE
     Dosage: 2.5 MG, 1X/DAY
     Route: 065
  8. CLONIDINE HYDROCHLORIDE. [Suspect]
     Active Substance: CLONIDINE HYDROCHLORIDE
     Dosage: 0.4 MG, 1X/DAY
     Route: 065
  9. CLONIDINE HYDROCHLORIDE. [Suspect]
     Active Substance: CLONIDINE HYDROCHLORIDE
     Dosage: 0.3 MG, 1X/DAY
     Route: 065
  10. FLUOXETINE [Suspect]
     Active Substance: FLUOXETINE HYDROCHLORIDE
     Dosage: 20 MG, 1X/DAY
     Route: 065
  11. CLONIDINE HYDROCHLORIDE. [Suspect]
     Active Substance: CLONIDINE HYDROCHLORIDE
     Dosage: 0.2 MG, 2X/DAY
     Route: 065

REACTIONS (3)
  - Withdrawal syndrome [Recovered/Resolved]
  - Serotonin syndrome [Recovering/Resolving]
  - Neuroleptic malignant syndrome [Recovering/Resolving]
